FAERS Safety Report 18494826 (Version 1)
Quarter: 2020Q4

REPORT INFORMATION
  Report Type: Spontaneous
  Country: US (occurrence: US)
  Receive Date: 20201112
  Receipt Date: 20201112
  Transmission Date: 20210114
  Serious: No
  Sender: FDA-Public Use
  Company Number: US-ASTRAZENECA-2020SF29710

PATIENT
  Age: 21237 Day
  Sex: Female

DRUGS (2)
  1. BYDUREON BCISE [Suspect]
     Active Substance: EXENATIDE
     Route: 058
  2. BYDUREON [Suspect]
     Active Substance: EXENATIDE
     Indication: TYPE 2 DIABETES MELLITUS
     Route: 058
     Dates: start: 20200921

REACTIONS (6)
  - Injection site urticaria [Unknown]
  - Rash erythematous [Recovering/Resolving]
  - Injection site mass [Not Recovered/Not Resolved]
  - Injection site pruritus [Unknown]
  - Injection site bruising [Unknown]
  - Injection site nodule [Unknown]

NARRATIVE: CASE EVENT DATE: 20200930
